FAERS Safety Report 20009062 (Version 1)
Quarter: 2021Q4

REPORT INFORMATION
  Report Type: Report from Study
  Country: GB (occurrence: GB)
  Receive Date: 20211029
  Receipt Date: 20211029
  Transmission Date: 20220303
  Serious: Yes (Other)
  Sender: FDA-Public Use
  Company Number: GB-BOEHRINGERINGELHEIM-2021-BI-120870

PATIENT
  Sex: Male

DRUGS (1)
  1. OFEV [Suspect]
     Active Substance: NINTEDANIB
     Indication: Idiopathic pulmonary fibrosis
     Dosage: 1 CAPSULE TO BE TAKEN 2 TIMES A DAY
     Route: 048
     Dates: start: 201712

REACTIONS (1)
  - Pulmonary thrombosis [Unknown]
